FAERS Safety Report 16333205 (Version 1)
Quarter: 2019Q2

REPORT INFORMATION
  Report Type: Spontaneous
  Country: US (occurrence: US)
  Receive Date: 20190520
  Receipt Date: 20190520
  Transmission Date: 20190711
  Serious: No
  Sender: FDA-Public Use
  Company Number: US-GE HEALTHCARE LIFE SCIENCES-2019CSU001557

PATIENT
  Age: 50 Year
  Sex: Male
  Weight: 78.18 kg

DRUGS (25)
  1. COMBIGAN [Concomitant]
     Active Substance: BRIMONIDINE TARTRATE\TIMOLOL MALEATE
  2. LOPRAMIDE [Concomitant]
  3. OXYCODON [Concomitant]
     Active Substance: OXYCODONE
  4. SIMETHICONE (DIMETHICONE) [Concomitant]
     Active Substance: DIMETHICONE
  5. HALOPERIDOL. [Concomitant]
     Active Substance: HALOPERIDOL
  6. LEXAPRO [Concomitant]
     Active Substance: ESCITALOPRAM OXALATE
  7. SINEMET [Concomitant]
     Active Substance: CARBIDOPA\LEVODOPA
  8. BISCODYL [Concomitant]
     Active Substance: BISACODYL
  9. COLACE [Concomitant]
     Active Substance: DOCUSATE SODIUM
  10. ASA [Concomitant]
     Active Substance: ASPIRIN
  11. METOPROLOL. [Concomitant]
     Active Substance: METOPROLOL
  12. PROTONIX [Concomitant]
     Active Substance: PANTOPRAZOLE SODIUM
  13. MYOVIEW [Suspect]
     Active Substance: TECHNETIUM TC-99M TETROFOSMIN
     Indication: CARDIAC STRESS TEST
     Dosage: 1609.5 MBQ (43.5 MCI), ONCE
     Route: 042
     Dates: start: 20190307, end: 20190307
  14. MYOVIEW [Suspect]
     Active Substance: TECHNETIUM TC-99M TETROFOSMIN
     Indication: HYPERTENSION
  15. MELATONIN [Concomitant]
     Active Substance: MELATONIN
  16. MYOVIEW [Suspect]
     Active Substance: TECHNETIUM TC-99M TETROFOSMIN
     Indication: DIABETES MELLITUS
  17. MYOVIEW [Suspect]
     Active Substance: TECHNETIUM TC-99M TETROFOSMIN
     Indication: RENAL DISORDER
  18. NEPHRO-VITE [Concomitant]
  19. SEROQUEL [Concomitant]
     Active Substance: QUETIAPINE FUMARATE
  20. TECHNETIUM TC 99M [Concomitant]
     Active Substance: TECHNETIUM TC-99M
     Dosage: UNK UNK, SINGLE
     Route: 042
     Dates: start: 20190307, end: 20190307
  21. BENZTROPINE MESILATE [Concomitant]
     Active Substance: BENZTROPINE MESYLATE
  22. MYOVIEW [Suspect]
     Active Substance: TECHNETIUM TC-99M TETROFOSMIN
     Indication: SCAN MYOCARDIAL PERFUSION
  23. ALBUTEROL. [Concomitant]
     Active Substance: ALBUTEROL
  24. CALCIUM ACETATE. [Concomitant]
     Active Substance: CALCIUM ACETATE
  25. ROPINIROLE. [Concomitant]
     Active Substance: ROPINIROLE

REACTIONS (2)
  - Drug ineffective [Recovered/Resolved]
  - No adverse event [Recovered/Resolved]

NARRATIVE: CASE EVENT DATE: 20190307
